FAERS Safety Report 11779722 (Version 3)
Quarter: 2015Q4

REPORT INFORMATION
  Report Type: Spontaneous
  Country: GR (occurrence: GR)
  Receive Date: 20151125
  Receipt Date: 20151204
  Transmission Date: 20160304
  Serious: Yes (Hospitalization)
  Sender: FDA-Public Use
  Company Number: GR-BIOGENIDEC-2015BI154330

PATIENT
  Age: 39 Year
  Sex: Female

DRUGS (2)
  1. TECFIDERA [Suspect]
     Active Substance: DIMETHYL FUMARATE
     Indication: MULTIPLE SCLEROSIS
     Route: 048
     Dates: start: 201507
  2. DOGMATYL [Concomitant]
     Active Substance: SULPIRIDE
     Indication: ANXIETY
     Dates: end: 2015

REACTIONS (5)
  - Dizziness [Recovered/Resolved]
  - Blood glucose decreased [Unknown]
  - Amenorrhoea [Recovered/Resolved]
  - Endocrine disorder [Unknown]
  - Chest pain [Recovered/Resolved]

NARRATIVE: CASE EVENT DATE: 20150925
